FAERS Safety Report 9232129 (Version 3)
Quarter: 2013Q2

REPORT INFORMATION
  Report Type: Spontaneous
  Country: US (occurrence: US)
  Receive Date: 20130415
  Receipt Date: 20130424
  Transmission Date: 20140414
  Serious: No
  Sender: FDA-Public Use
  Company Number: US-PFIZER INC-2013111111

PATIENT
  Age: 51 Year
  Sex: Female
  Weight: 108.84 kg

DRUGS (1)
  1. ZITHROMAX [Suspect]
     Indication: SINUSITIS
     Dosage: 250 MG, 1X/DAY
     Route: 048
     Dates: start: 201212, end: 201212

REACTIONS (9)
  - Hypertension [Unknown]
  - Electrocardiogram abnormal [Unknown]
  - Heart rate irregular [Unknown]
  - Cardiac disorder [Unknown]
  - Sinus bradycardia [Unknown]
  - Left atrial dilatation [Unknown]
  - QRS axis abnormal [Unknown]
  - Left ventricular hypertrophy [Unknown]
  - Electrocardiogram T wave abnormal [Unknown]
